FAERS Safety Report 14835287 (Version 1)
Quarter: 2018Q2

REPORT INFORMATION
  Report Type: Report from Study
  Country: US (occurrence: US)
  Receive Date: 20180502
  Receipt Date: 20180502
  Transmission Date: 20180711
  Serious: Yes (Other)
  Sender: FDA-Public Use
  Company Number: US-ROCHE-2114827

PATIENT
  Sex: Male

DRUGS (1)
  1. ESBRIET [Suspect]
     Active Substance: PIRFENIDONE
     Indication: IDIOPATHIC PULMONARY FIBROSIS
     Dosage: ONGOING-YES
     Route: 065

REACTIONS (4)
  - Medication error [Unknown]
  - Kidney infection [Recovered/Resolved]
  - Therapy cessation [Unknown]
  - White blood cell count increased [Unknown]
